FAERS Safety Report 9966206 (Version 2)
Quarter: 2014Q1

REPORT INFORMATION
  Report Type: Report from Study
  Country: US (occurrence: US)
  Receive Date: 20140305
  Receipt Date: 20140305
  Transmission Date: 20141002
  Serious: Yes (Other)
  Sender: FDA-Public Use
  Company Number: US-ABBVIE-13P-163-1098572-00

PATIENT
  Sex: Female
  Weight: 68.1 kg

DRUGS (21)
  1. HUMIRA [Suspect]
     Indication: RHEUMATOID ARTHRITIS
     Dates: start: 2011
  2. HUMIRA [Suspect]
  3. ACTIVELLA [Concomitant]
     Indication: HOT FLUSH
     Dosage: 0.1 MG/0.5 MG DAILY
     Dates: end: 201211
  4. ACTIVELLA [Concomitant]
     Dosage: 0.1 MG/0.5 MG DAILY
     Dates: start: 201304
  5. METHADONE [Concomitant]
     Indication: BACK PAIN
  6. PLAQUENIL [Concomitant]
     Indication: RHEUMATOID ARTHRITIS
  7. PRISTIQ [Concomitant]
     Indication: ANTIDEPRESSANT THERAPY
     Dosage: 50 MG DAILY
  8. FOLIC ACID [Concomitant]
     Indication: VITAMIN SUPPLEMENTATION
     Dosage: 1 MG DAILY
  9. AMBIEN [Concomitant]
     Indication: SLEEP DISORDER THERAPY
     Dosage: AT BEDTIME AS NEEDED
  10. OVER THE COUNTER MEDICATIONS FOR CONSTIPATION [Concomitant]
     Indication: CONSTIPATION
  11. OVER THE COUNTER MEDICATIONS FOR IRON [Concomitant]
     Indication: BLOOD IRON
  12. OVER THE COUNTER MEDICATIONS FOR CALCIUM [Concomitant]
     Indication: BLOOD CALCIUM
  13. METHOTREXATE [Concomitant]
     Indication: PRODUCT USED FOR UNKNOWN INDICATION
     Dosage: 6 TABLETS WEEKLY
  14. PROMETHAZINE [Concomitant]
     Indication: INSOMNIA
  15. PROMETHAZINE [Concomitant]
     Indication: NAUSEA
  16. CLONAZEPAM [Concomitant]
     Indication: ANXIOLYTIC THERAPY
  17. CLONAZEPAM [Concomitant]
     Indication: INSOMNIA
  18. PRO-AIR [Concomitant]
     Indication: ASTHMA
     Dosage: 2 IN ONE DAY AS NEEDED
     Route: 055
  19. ADVAIR [Concomitant]
     Indication: ASTHMA
     Dosage: 250/50
     Route: 055
  20. LORTAB [Concomitant]
     Indication: PRODUCT USED FOR UNKNOWN INDICATION
     Dosage: UP TO 4 TIMES DAILY (ONLY TAKES 1-2 PER WEEK)
     Route: 048
  21. CYANOCOBALAMIN [Concomitant]
     Indication: PRODUCT USED FOR UNKNOWN INDICATION
     Dosage: 1000MG/ML
     Route: 050

REACTIONS (6)
  - Hysterectomy [Unknown]
  - Injection site pain [Not Recovered/Not Resolved]
  - Injection site pruritus [Not Recovered/Not Resolved]
  - Injection site erythema [Not Recovered/Not Resolved]
  - Sinusitis [Unknown]
  - Injection site swelling [Not Recovered/Not Resolved]
